FAERS Safety Report 7157366-1 (Version None)
Quarter: 2010Q4

REPORT INFORMATION
  Report Type: 
  Country: None (occurrence: None)
  Receive Date: 20101214
  Receipt Date: 20101208
  Transmission Date: 20110411
  Serious: No
  Sender: FDA-Public Use
  Company Number: US-PFIZER INC-2010167557

PATIENT
  Sex: Female
  Weight: 56.689 kg

DRUGS (2)
  1. PRISTIQ [Suspect]
     Indication: ANXIETY
     Dosage: UNK, 1X/DAY
     Route: 048
     Dates: start: 20101101, end: 20101101
  2. TOPAMAX [Suspect]
     Indication: MIGRAINE
     Dosage: 25MG IN MORNING AND 50MG AT NIGHT
     Route: 048
     Dates: start: 20100801

REACTIONS (1)
  - DRUG INEFFECTIVE [None]
